FAERS Safety Report 6918005-5 (Version None)
Quarter: 2010Q3

REPORT INFORMATION
  Report Type: 
  Country: None (occurrence: None)
  Receive Date: 20100810
  Receipt Date: 20100423
  Transmission Date: 20110219
  Serious: No
  Sender: FDA-Public Use
  Company Number: US-PFIZER INC-2009205452

PATIENT
  Sex: Male
  Weight: 49.887 kg

DRUGS (1)
  1. TOVIAZ [Suspect]
     Indication: MICTURITION DISORDER
     Dosage: 8 MG, 1X/DAY EVERY DAY
     Dates: start: 20090401

REACTIONS (2)
  - DRUG INEFFECTIVE [None]
  - NOCTURIA [None]
